FAERS Safety Report 10418394 (Version 1)
Quarter: 2014Q3

REPORT INFORMATION
  Report Type: Spontaneous
  Country: US (occurrence: None)
  Receive Date: 20140828
  Receipt Date: 20140828
  Transmission Date: 20150326
  Serious: No
  Sender: FDA-Public Use
  Company Number: None

PATIENT
  Age: 6 Year
  Sex: Female
  Weight: 21.77 kg

DRUGS (1)
  1. CEFDINIR. [Suspect]
     Active Substance: CEFDINIR
     Indication: PHARYNGITIS STREPTOCOCCAL
     Route: 048
     Dates: start: 20140812, end: 20140820

REACTIONS (6)
  - Gait disturbance [None]
  - Feeling abnormal [None]
  - Peripheral swelling [None]
  - Pruritus [None]
  - Urticaria [None]
  - Sleep disorder [None]

NARRATIVE: CASE EVENT DATE: 20140821
